FAERS Safety Report 4666704-0 (Version None)
Quarter: 2005Q2

REPORT INFORMATION
  Report Type: 
  Country: None (occurrence: None)
  Receive Date: 20050518
  Receipt Date: 20050502
  Transmission Date: 20051028
  Serious: Yes (Hospitalization)
  Sender: FDA-Public Use
  Company Number: 214513

PATIENT
  Age: 40 Year
  Sex: Female

DRUGS (2)
  1. AVASTIN [Suspect]
     Indication: RECTAL CANCER
     Dosage: 10 MG/KG ,DAYS 1 + 5, INTRAVENOUS
     Route: 042
     Dates: start: 20050222
  2. BAY 43-9006(SORAFENIB) [Suspect]
     Indication: RECTAL CANCER
     Dosage: 200 MG, BID, ORAL
     Route: 048
     Dates: start: 20050222, end: 20050321

REACTIONS (6)
  - DIARRHOEA [None]
  - ENDOSCOPY LARGE BOWEL ABNORMAL [None]
  - FISTULA [None]
  - HAEMOGLOBIN DECREASED [None]
  - INTESTINAL ULCER [None]
  - POUCHITIS [None]
